FAERS Safety Report 4621865-4 (Version None)
Quarter: 2005Q1

REPORT INFORMATION
  Report Type: 
  Country: None (occurrence: None)
  Receive Date: 20050329
  Receipt Date: 20050223
  Transmission Date: 20050727
  Serious: Yes (Death, Hospitalization, Other)
  Sender: FDA-Public Use
  Company Number: FR-BRISTOL-MYERS SQUIBB COMPANY-12876900

PATIENT
  Age: 61 Year
  Sex: Male

DRUGS (9)
  1. BRISTOPEN [Suspect]
     Indication: OSTEOARTHRITIS
     Route: 048
     Dates: start: 20041223, end: 20041230
  2. VASTEN TABS [Suspect]
     Indication: LIPID METABOLISM DISORDER
     Route: 048
     Dates: end: 20041106
  3. ORBENINE [Suspect]
     Indication: OSTEOARTHRITIS
     Route: 048
     Dates: start: 20041117, end: 20041223
  4. ALDACTONE [Suspect]
     Dosage: INCREASED TO 150 MG/DAY
     Route: 048
  5. LASIX [Suspect]
     Indication: OEDEMA
     Dosage: INCREASED TO 40 MG/DAY
     Route: 048
  6. LASIX [Suspect]
     Indication: ASCITES
     Dosage: INCREASED TO 40 MG/DAY
     Route: 048
  7. KEPPRA [Suspect]
     Route: 048
     Dates: start: 20040221
  8. DUPHALAC [Concomitant]
  9. NEXIUM [Concomitant]
     Route: 048
     Dates: start: 20041221

REACTIONS (11)
  - ASCITES [None]
  - CONCOMITANT DISEASE AGGRAVATED [None]
  - HEPATIC CIRRHOSIS [None]
  - HEPATIC ENZYME INCREASED [None]
  - HEPATIC FAILURE [None]
  - HYPERBILIRUBINAEMIA [None]
  - HYPERSPLENISM [None]
  - JAUNDICE [None]
  - NERVOUS SYSTEM DISORDER [None]
  - NEUROLOGICAL EXAMINATION ABNORMAL [None]
  - OEDEMA [None]
